FAERS Safety Report 10884578 (Version 1)
Quarter: 2015Q1

REPORT INFORMATION
  Report Type: Spontaneous
  Country: US (occurrence: None)
  Receive Date: 20150227
  Receipt Date: 20150227
  Transmission Date: 20150721
  Serious: Yes (Other)
  Sender: FDA-Public Use
  Company Number: None

PATIENT
  Age: 57 Year
  Sex: Male
  Weight: 108.86 kg

DRUGS (6)
  1. DIOVAN [Concomitant]
     Active Substance: VALSARTAN
  2. SUDAFED [Concomitant]
     Active Substance: PSEUDOEPHEDRINE HYDROCHLORIDE
  3. MULTI-VITAMINS [Concomitant]
  4. POLYMYXIN B SULFATE/TRIMETHOPRIM [Suspect]
     Active Substance: POLYMYXIN B SULFATE\TRIMETHOPRIM
     Indication: EYE INFECTION
     Dosage: 1 DROP 4 TIMES/DAY EYEDROPS
     Dates: start: 20141201, end: 20141208
  5. MUSINEX [Concomitant]
  6. SIMVASTATIN. [Concomitant]
     Active Substance: SIMVASTATIN

REACTIONS (6)
  - Hypersensitivity [None]
  - Eyelid oedema [None]
  - Lacrimation increased [None]
  - Pruritus [None]
  - Burning sensation [None]
  - Ocular hyperaemia [None]

NARRATIVE: CASE EVENT DATE: 20141204
